FAERS Safety Report 5842957 (Version 3)
Quarter: 2016Q3

REPORT INFORMATION
  Report Type: Spontaneous
  Country: DK (occurrence: DK)
  Receive Date: 20050722
  Receipt Date: 20160824
  Transmission Date: 20161109
  Serious: Yes (Congenital Anomaly, Other)
  Sender: FDA-Public Use
  Company Number: DK-BRISTOL-MYERS SQUIBB COMPANY-13042031

PATIENT
  Sex: Female
  Weight: 1.75 kg

DRUGS (1)
  1. METFORMIN HYDROCHLORIDE. [Suspect]
     Active Substance: METFORMIN HYDROCHLORIDE
     Indication: PRODUCT USED FOR UNKNOWN INDICATION
     Dosage: 1500 MG, QD
     Route: 064
     Dates: start: 20040611, end: 20040722

REACTIONS (4)
  - Pulmonary hypoplasia [Unknown]
  - Congenital diaphragmatic hernia [Unknown]
  - Hepatic steatosis [Unknown]
  - Foetal exposure during pregnancy [Unknown]
